FAERS Safety Report 8546192-4 (Version None)
Quarter: 2012Q3

REPORT INFORMATION
  Report Type: 
  Country: None (occurrence: None)
  Receive Date: 20120727
  Receipt Date: 20120723
  Transmission Date: 20120928
  Serious: Yes (Other)
  Sender: FDA-Public Use
  Company Number: PHHY2012IT063224

PATIENT
  Age: 91 Year
  Sex: Female

DRUGS (9)
  1. LEVOFLOXACIN [Suspect]
     Indication: BACTERIAL INFECTION
     Dosage: 500 MG, PER DAY
  2. TRAMADOL HYDROCHLORIDE [Interacting]
  3. LANSOPRAZOLE [Concomitant]
  4. ENALAPRIL/HCT [Concomitant]
     Indication: HYPERTENSION
     Route: 048
  5. ENALAPRIL MALEATE [Concomitant]
  6. ASPIRIN [Concomitant]
     Indication: ANTIPLATELET THERAPY
  7. GLYBURIDE AND METFORMIN HYDROCHLORIDE [Interacting]
     Indication: TYPE 2 DIABETES MELLITUS
  8. BUPRENORPHINE [Interacting]
     Indication: PAIN
     Dosage: 35 UG, UNK
     Route: 062
  9. NADROPARIN [Interacting]
     Indication: ISCHAEMIC STROKE
     Dosage: 3800 IU, PR DAY

REACTIONS (5)
  - COMA [None]
  - SKIN WARM [None]
  - UNRESPONSIVE TO STIMULI [None]
  - DRUG INTERACTION [None]
  - HYPOGLYCAEMIA [None]
